FAERS Safety Report 17272922 (Version 2)
Quarter: 2020Q1

REPORT INFORMATION
  Report Type: Report from Study
  Country: IT (occurrence: IT)
  Receive Date: 20200115
  Receipt Date: 20200131
  Transmission Date: 20200409
  Serious: Yes (Disabling, Other)
  Sender: FDA-Public Use
  Company Number: IT-AMGEN-ITACT2020005002

PATIENT
  Age: 40 Year
  Sex: Male

DRUGS (13)
  1. IDARUBICIN [Suspect]
     Active Substance: IDARUBICIN
     Indication: ACUTE LYMPHOCYTIC LEUKAEMIA
     Dosage: 21 MILLIGRAM
     Route: 042
     Dates: start: 20191217
  2. CYCLOPHOSPHAMIDE. [Suspect]
     Active Substance: CYCLOPHOSPHAMIDE
     Indication: ACUTE LYMPHOCYTIC LEUKAEMIA
     Dosage: 1800 MILLIGRAM
     Route: 042
     Dates: start: 20191217
  3. CYTARABINE. [Suspect]
     Active Substance: CYTARABINE
     Indication: ACUTE LYMPHOCYTIC LEUKAEMIA
     Dosage: 135 MILLIGRAM
     Route: 042
     Dates: start: 20191218
  4. ZANIDIP [Concomitant]
     Active Substance: LERCANIDIPINE HYDROCHLORIDE
     Dosage: UNK
     Dates: start: 20191216
  5. CRESEMBA [Concomitant]
     Active Substance: ISAVUCONAZONIUM SULFATE
     Dosage: UNK
     Dates: start: 20191216
  6. PEG/L-ASPARAGINASE [Suspect]
     Active Substance: PEGASPARGASE
     Indication: ACUTE LYMPHOCYTIC LEUKAEMIA
     Dosage: 2700 MILLIGRAM
     Route: 042
     Dates: start: 20191224
  7. BACTRIM [Concomitant]
     Active Substance: SULFAMETHOXAZOLE\TRIMETHOPRIM
     Indication: PROPHYLAXIS
     Dosage: UNK
     Dates: start: 20191216
  8. PANTOPRAZOLE [Concomitant]
     Active Substance: PANTOPRAZOLE
     Dosage: UNK
     Dates: start: 20191216
  9. DEURSIL [Concomitant]
     Active Substance: URSODIOL
     Dosage: UNK
     Dates: start: 20191216
  10. DUPHALAC [Concomitant]
     Active Substance: LACTULOSE
     Dosage: UNK
     Dates: start: 20191216
  11. BLINATUMOMAB [Suspect]
     Active Substance: BLINATUMOMAB
     Indication: ACUTE LYMPHOCYTIC LEUKAEMIA
     Dosage: UNK
     Route: 065
  12. 6-MERCAPTOPURINE MONOHYDRATE [Suspect]
     Active Substance: MERCAPTOPURINE
     Indication: ACUTE LYMPHOCYTIC LEUKAEMIA
     Dosage: 400 MILLIGRAM
     Route: 048
     Dates: start: 20191217
  13. CARDICOR [Concomitant]
     Active Substance: BISOPROLOL
     Dosage: UNK
     Dates: start: 20191216

REACTIONS (1)
  - Superior sagittal sinus thrombosis [Recovered/Resolved with Sequelae]

NARRATIVE: CASE EVENT DATE: 20191226
